FAERS Safety Report 15523670 (Version 1)
Quarter: 2018Q4

REPORT INFORMATION
  Report Type: Report from Study
  Country: None (occurrence: RO)
  Receive Date: 20181018
  Receipt Date: 20181018
  Transmission Date: 20190205
  Serious: Yes (Hospitalization, Other)
  Sender: FDA-Public Use
  Company Number: RO-ABBVIE-18S-135-2517963-00

PATIENT
  Age: 61 Year
  Sex: Male

DRUGS (1)
  1. DUODOPA [Suspect]
     Active Substance: CARBIDOPA\LEVODOPA
     Indication: PARKINSON^S DISEASE
     Dosage: MD=11.00, CD=4.50, ED=2.00, NRED=3;
     Route: 050
     Dates: start: 20140414

REACTIONS (11)
  - Hypertension [Unknown]
  - Respiratory failure [Recovered/Resolved]
  - Speech disorder [Unknown]
  - Dysphagia [Unknown]
  - Deficiency anaemia [Not Recovered/Not Resolved]
  - Weight decreased [Unknown]
  - Dehydration [Not Recovered/Not Resolved]
  - Pneumonia [Recovered/Resolved]
  - Metabolic disorder [Recovering/Resolving]
  - Hypovolaemia [Not Recovered/Not Resolved]
  - General physical health deterioration [Unknown]

NARRATIVE: CASE EVENT DATE: 20180913
